FAERS Safety Report 25292556 (Version 1)
Quarter: 2025Q2

REPORT INFORMATION
  Report Type: Spontaneous
  Country: US (occurrence: US)
  Receive Date: 20250510
  Receipt Date: 20250510
  Transmission Date: 20250716
  Serious: No
  Sender: SANOFI AVENTIS
  Company Number: US-SA-2025SA123953

PATIENT
  Age: 31 Year
  Sex: Female

DRUGS (23)
  1. DUPIXENT [Suspect]
     Active Substance: DUPILUMAB
     Indication: Dermatitis atopic
     Route: 058
     Dates: start: 20180131
  2. CICLOPIROX [Concomitant]
     Active Substance: CICLOPIROX
  3. CLINDAMYCIN [Concomitant]
     Active Substance: CLINDAMYCIN
  4. PREDNISONE [Concomitant]
     Active Substance: PREDNISONE
  5. ZYRTEC [Concomitant]
     Active Substance: CETIRIZINE HYDROCHLORIDE
  6. IBUPROFEN [Concomitant]
     Active Substance: IBUPROFEN
  7. NEXPLANON [Concomitant]
     Active Substance: ETONOGESTREL
  8. Vinegar apple cider plus [Concomitant]
  9. METRONIDAZOLE [Concomitant]
     Active Substance: METRONIDAZOLE
  10. SLYND [Concomitant]
     Active Substance: DROSPIRENONE
  11. MIRENA [Concomitant]
     Active Substance: LEVONORGESTREL
  12. TOPIRAMATE [Concomitant]
     Active Substance: TOPIRAMATE
  13. CLARITIN [Concomitant]
     Active Substance: LORATADINE
  14. EPIPEN [Concomitant]
     Active Substance: EPINEPHRINE
  15. IMITREX [Concomitant]
     Active Substance: SUMATRIPTAN SUCCINATE
  16. CORTISONE [Concomitant]
     Active Substance: CORTISONE
  17. TACROLIMUS [Concomitant]
     Active Substance: TACROLIMUS
  18. LUTERA [Concomitant]
     Active Substance: ETHINYL ESTRADIOL\LEVONORGESTREL
  19. MONTELUKAST [Concomitant]
     Active Substance: MONTELUKAST
  20. SINGULAIR [Concomitant]
     Active Substance: MONTELUKAST SODIUM
  21. ONDANSETRON [Concomitant]
     Active Substance: ONDANSETRON
  22. SUMATRIPTAN [Concomitant]
     Active Substance: SUMATRIPTAN
  23. CYCLOBENZAPRINE [Concomitant]
     Active Substance: CYCLOBENZAPRINE

REACTIONS (1)
  - Maternal exposure during pregnancy [Unknown]

NARRATIVE: CASE EVENT DATE: 20250424
